FAERS Safety Report 5649769-9 (Version None)
Quarter: 2008Q1

REPORT INFORMATION
  Report Type: 
  Country: None (occurrence: None)
  Receive Date: 20080304
  Receipt Date: 20080221
  Transmission Date: 20080703
  Serious: Yes (Other)
  Sender: FDA-Public Use
  Company Number: US-PFIZER INC-2008017242

PATIENT
  Sex: Female
  Weight: 49.9 kg

DRUGS (12)
  1. DILANTIN [Suspect]
     Indication: CONVULSION
     Route: 048
  2. ASPIRIN [Concomitant]
  3. COLCHICINE [Concomitant]
  4. LASIX [Concomitant]
  5. GABAPENTIN [Concomitant]
  6. LEVOTHYROXINE SODIUM [Concomitant]
  7. TYLENOL (CAPLET) [Concomitant]
  8. GALANTAMINE HYDROBROMIDE [Concomitant]
  9. SENNA [Concomitant]
  10. VITAMINS [Concomitant]
  11. DEPAKOTE [Concomitant]
  12. VICODIN [Concomitant]

REACTIONS (2)
  - DRUG LEVEL FLUCTUATING [None]
  - URINARY TRACT INFECTION [None]
